FAERS Safety Report 8201088-2 (Version None)
Quarter: 2012Q1

REPORT INFORMATION
  Report Type: 
  Country: None (occurrence: None)
  Receive Date: 20120306
  Receipt Date: 20120224
  Transmission Date: 20120608
  Serious: Yes (Other)
  Sender: FDA-Public Use
  Company Number: 2012MA002720

PATIENT
  Age: 51 Year
  Sex: Male

DRUGS (3)
  1. ACETAMINOPHEN AND CODEINE PHOSPHATE [Suspect]
     Dosage: PO
     Route: 048
  2. WARFARIN SODIUM [Concomitant]
  3. PHENELZINE SULFATE [Suspect]
     Dosage: 15 MG;TID

REACTIONS (5)
  - MORBID THOUGHTS [None]
  - HALLUCINATION, VISUAL [None]
  - DEPRESSION [None]
  - SUICIDAL IDEATION [None]
  - FEELING ABNORMAL [None]
